FAERS Safety Report 21554851 (Version 2)
Quarter: 2023Q1

REPORT INFORMATION
  Report Type: Spontaneous
  Country: US (occurrence: US)
  Receive Date: 20221104
  Receipt Date: 20230131
  Transmission Date: 20230418
  Serious: No
  Sender: FDA-Public Use
  Company Number: US-CLIENT CHANGE ME-2022-IMC-001164

PATIENT
  Age: 68 Year
  Sex: Female

DRUGS (3)
  1. KIMMTRAK [Suspect]
     Active Substance: TEBENTAFUSP-TEBN
     Indication: Choroid melanoma
     Dosage: 20 MICROGRAM, SINGLE, C1D1
     Dates: start: 20221012, end: 20221012
  2. KIMMTRAK [Suspect]
     Active Substance: TEBENTAFUSP-TEBN
     Dosage: 30 MICROGRAM, SINGLE, DOSE 2
     Dates: start: 20221019, end: 20221019
  3. KIMMTRAK [Suspect]
     Active Substance: TEBENTAFUSP-TEBN
     Dosage: 68 MICROGRAM, SINGLE, DOSE 3
     Dates: start: 20221026, end: 20221026

REACTIONS (7)
  - Cytokine release syndrome [Unknown]
  - Tachypnoea [Recovered/Resolved]
  - Nausea [Recovered/Resolved]
  - Vomiting [Recovered/Resolved]
  - Hypotension [Recovered/Resolved]
  - Hypoxia [Recovered/Resolved]
  - Pyrexia [Recovered/Resolved]

NARRATIVE: CASE EVENT DATE: 20221012
